FAERS Safety Report 13517053 (Version 1)
Quarter: 2017Q2

REPORT INFORMATION
  Report Type: Spontaneous
  Country: US (occurrence: US)
  Receive Date: 20170505
  Receipt Date: 20170505
  Transmission Date: 20170830
  Serious: Yes (Hospitalization)
  Sender: FDA-Public Use
  Company Number: None

PATIENT
  Age: 53 Year
  Sex: Male
  Weight: 70.4 kg

DRUGS (2)
  1. NOVOLOG [Suspect]
     Active Substance: INSULIN ASPART
     Indication: DIABETES MELLITUS
     Dosage: DOSE - 4 UNITS?DATES OF USE - CHRONIC
     Route: 058
  2. LANTUS [Suspect]
     Active Substance: INSULIN GLARGINE
     Indication: DIABETES MELLITUS
     Dosage: DOSE - 50 UNITS?FREQUENCY - QAM?DATES OF USE - CHRONIC
     Route: 058

REACTIONS (2)
  - Hypoglycaemia [None]
  - Incorrect dose administered [None]

NARRATIVE: CASE EVENT DATE: 20160730
